FAERS Safety Report 7893489-7 (Version None)
Quarter: 2011Q4

REPORT INFORMATION
  Report Type: 
  Country: None (occurrence: None)
  Receive Date: 20111104
  Receipt Date: 20111026
  Transmission Date: 20120403
  Serious: No
  Sender: FDA-Public Use
  Company Number: US-B.I. PHARMACEUTICALS,INC./RIDGEFIELD-2011-BP-23033BP

PATIENT
  Sex: Female

DRUGS (8)
  1. BENICAR [Concomitant]
  2. DESLORATADINE [Concomitant]
  3. LUTEIN [Concomitant]
     Indication: MACULAR DEGENERATION
  4. ATENOLOL [Concomitant]
  5. OMEPRAZOLE [Concomitant]
     Indication: GASTROOESOPHAGEAL REFLUX DISEASE
  6. CARBIDOPA + LEVODOPA [Concomitant]
     Indication: PARKINSON'S DISEASE
  7. FUROSEMIDE [Concomitant]
  8. PRADAXA [Suspect]
     Indication: ATRIAL FIBRILLATION
     Dosage: 300 MG
     Route: 048

REACTIONS (2)
  - SENSORY DISTURBANCE [None]
  - PAROSMIA [None]
